FAERS Safety Report 4608788-1 (Version None)
Quarter: 2005Q1

REPORT INFORMATION
  Report Type: 
  Country: None (occurrence: None)
  Receive Date: 20050309
  Receipt Date: 20050211
  Transmission Date: 20050727
  Serious: Yes (Other)
  Sender: FDA-Public Use
  Company Number: 2005-BP-03578YA

PATIENT
  Age: 68 Year
  Sex: Male

DRUGS (1)
  1. TAMSULOSIN HCL [Suspect]
     Dosage: 0.4 MG
     Route: 048

REACTIONS (6)
  - AGGRESSION [None]
  - ANXIETY [None]
  - CONFUSIONAL STATE [None]
  - HEADACHE [None]
  - HOMICIDAL IDEATION [None]
  - RESTLESSNESS [None]
